FAERS Safety Report 8010911-6 (Version None)
Quarter: 2011Q4

REPORT INFORMATION
  Report Type: 
  Country: None (occurrence: None)
  Receive Date: 20111228
  Receipt Date: 20111220
  Transmission Date: 20120403
  Serious: Yes (Other)
  Sender: FDA-Public Use
  Company Number: US-US-EMD SERONO, INC.-7099191

PATIENT
  Sex: Female
  Weight: 59 kg

DRUGS (4)
  1. REBIF [Suspect]
     Route: 058
  2. REBIF [Suspect]
     Indication: MULTIPLE SCLEROSIS
     Route: 058
     Dates: start: 20110830
  3. UNSPECIFIED ANTI-DEPRESSANT MEDICATION [Concomitant]
     Indication: ANTIDEPRESSANT THERAPY
  4. UNSPECIFIED  ANTI-ANXIETY MEDICATION [Concomitant]
     Indication: ANXIETY

REACTIONS (4)
  - DEPRESSIVE SYMPTOM [None]
  - INFLUENZA LIKE ILLNESS [None]
  - SUICIDAL IDEATION [None]
  - FATIGUE [None]
